FAERS Safety Report 12493607 (Version 1)
Quarter: 2016Q2

REPORT INFORMATION
  Report Type: Spontaneous
  Country: US (occurrence: US)
  Receive Date: 20160623
  Receipt Date: 20160623
  Transmission Date: 20160815
  Serious: Yes (Other)
  Sender: FDA-Public Use
  Company Number: US-MYLANLABS-2016M1016973

PATIENT

DRUGS (3)
  1. WARFARIN [Suspect]
     Active Substance: WARFARIN
     Dosage: DECREASED TO 12 MG/WEEK AFTER EXEMESTANE INITIATION
     Route: 065
  2. WARFARIN [Suspect]
     Active Substance: WARFARIN
     Indication: PULMONARY EMBOLISM
     Dosage: 21 MG/WEEK AND THEN DECREASED TO 12 MG/WEEK AFTER EXEMESTANE INITIATION
     Route: 065
  3. EXEMESTANE. [Interacting]
     Active Substance: EXEMESTANE
     Indication: INTRADUCTAL PROLIFERATIVE BREAST LESION
     Dosage: 25 MG DAILY
     Route: 065

REACTIONS (2)
  - Drug interaction [Recovering/Resolving]
  - International normalised ratio fluctuation [Recovering/Resolving]
